FAERS Safety Report 6596623-4 (Version None)
Quarter: 2010Q1

REPORT INFORMATION
  Report Type: 
  Country: None (occurrence: None)
  Receive Date: 20100223
  Receipt Date: 20100215
  Transmission Date: 20100710
  Serious: Yes (Hospitalization)
  Sender: FDA-Public Use
  Company Number: DE-PFIZER INC-2010019349

PATIENT
  Age: 50 Year
  Sex: Female

DRUGS (6)
  1. AZULFIDINE [Suspect]
     Indication: SPONDYLOARTHROPATHY
     Dosage: 500 MG, 2X/DAY
     Route: 048
     Dates: start: 20061221
  2. AZULFIDINE [Suspect]
     Dosage: 1000 MG, 2X/DAY
     Route: 048
     Dates: end: 20070106
  3. VALERIAN ROOT [Suspect]
     Indication: SLEEP DISORDER
     Dosage: 2 DF, 1X/DAY
     Route: 048
     Dates: start: 20050101, end: 20070106
  4. MUCOSOLVAN [Suspect]
     Indication: COUGH
     Dosage: UNK
     Route: 048
     Dates: start: 20061217, end: 20061228
  5. TONSILGON [Suspect]
     Indication: OROPHARYNGEAL PAIN
     Dosage: UNK
     Route: 049
     Dates: start: 20061217, end: 20061228
  6. DECORTIN [Suspect]
     Indication: SPONDYLOARTHROPATHY
     Dosage: UNK
     Route: 048
     Dates: start: 20061221, end: 20070106

REACTIONS (1)
  - ERYTHEMA MULTIFORME [None]
